FAERS Safety Report 17130446 (Version 1)
Quarter: 2019Q4

REPORT INFORMATION
  Report Type: Report from Study
  Country: US (occurrence: US)
  Receive Date: 20191209
  Receipt Date: 20191209
  Transmission Date: 20200122
  Serious: Yes (Death)
  Sender: FDA-Public Use
  Company Number: US-ASTRAZENECA-2019SF76055

PATIENT
  Sex: Male

DRUGS (12)
  1. VITAMIN D3 [Concomitant]
     Active Substance: CHOLECALCIFEROL
  2. OMEGA 3 [Concomitant]
     Active Substance: OMEGA-3 FATTY ACIDS
  3. CALCIUM [Concomitant]
     Active Substance: CALCIUM
  4. XGEVA [Concomitant]
     Active Substance: DENOSUMAB
  5. DUREZOL [Concomitant]
     Active Substance: DIFLUPREDNATE
  6. VIAGRA [Concomitant]
     Active Substance: SILDENAFIL CITRATE
  7. DILANTIN [Concomitant]
     Active Substance: PHENYTOIN
  8. TAGRISSO [Suspect]
     Active Substance: OSIMERTINIB
     Indication: LUNG CARCINOMA CELL TYPE UNSPECIFIED STAGE 0
     Route: 048
     Dates: start: 20180711
  9. DEXAMETHASONE. [Concomitant]
     Active Substance: DEXAMETHASONE
  10. TRIAMCINOLONE ACETONIDE. [Concomitant]
     Active Substance: TRIAMCINOLONE ACETONIDE
  11. VITAMIN C [Concomitant]
     Active Substance: ASCORBIC ACID
  12. NAPROXEN. [Concomitant]
     Active Substance: NAPROXEN

REACTIONS (1)
  - Death [Fatal]
